FAERS Safety Report 7633534-7 (Version None)
Quarter: 2011Q3

REPORT INFORMATION
  Report Type: 
  Country: None (occurrence: None)
  Receive Date: 20110725
  Receipt Date: 20110719
  Transmission Date: 20111222
  Serious: Yes (Other)
  Sender: FDA-Public Use
  Company Number: JP-PFIZER INC-2011145629

PATIENT
  Age: 87 Year
  Sex: Female

DRUGS (1)
  1. ZYVOX [Suspect]
     Dosage: 1200 MG, 1X/DAY
     Route: 048

REACTIONS (1)
  - HYPOGLYCAEMIA [None]
